FAERS Safety Report 9038833 (Version 1)
Quarter: 2013Q1

REPORT INFORMATION
  Report Type: Spontaneous
  Country: US (occurrence: None)
  Receive Date: 20130123
  Receipt Date: 20130123
  Transmission Date: 20140127
  Serious: Yes (Other)
  Sender: FDA-Public Use
  Company Number: None

PATIENT
  Sex: Female
  Weight: 55.79 kg

DRUGS (1)
  1. EVISTA [Suspect]
     Indication: OSTEOPENIA
     Route: 048
     Dates: start: 20120506, end: 20121111

REACTIONS (6)
  - Deep vein thrombosis [None]
  - Subclavian vein thrombosis [None]
  - Sinusitis [None]
  - Hot flush [None]
  - Nausea [None]
  - Vomiting [None]
